FAERS Safety Report 25539883 (Version 1)
Quarter: 2025Q3

REPORT INFORMATION
  Report Type: Spontaneous
  Country: US (occurrence: None)
  Receive Date: 20250710
  Receipt Date: 20250710
  Transmission Date: 20251020
  Serious: Yes (Hospitalization)
  Sender: FDA-CTU
  Company Number: None

PATIENT
  Sex: Female

DRUGS (1)
  1. DASATINIB [Suspect]
     Active Substance: DASATINIB
     Indication: Illness
     Dosage: FREQUENCY : DAILY;?
     Route: 048
     Dates: start: 20221118

REACTIONS (3)
  - Metamorphopsia [None]
  - Papilloedema [None]
  - Therapy interrupted [None]
